FAERS Safety Report 16972438 (Version 2)
Quarter: 2019Q4

REPORT INFORMATION
  Report Type: Report from Study
  Country: None (occurrence: PR)
  Receive Date: 20191029
  Receipt Date: 20191224
  Transmission Date: 20200122
  Serious: Yes (Other)
  Sender: FDA-Public Use
  Company Number: PR-ABBVIE-19K-131-2976538-00

PATIENT
  Sex: Female
  Weight: 76.27 kg

DRUGS (8)
  1. PRESERVISION [Concomitant]
     Active Substance: MINERALS\VITAMINS
     Indication: EYE DISORDER
     Dosage: OVER 3 YEARS AGO
     Route: 048
     Dates: start: 2016
  2. OMEGA 3 [Concomitant]
     Active Substance: OMEGA-3 FATTY ACIDS
     Indication: MACULAR DEGENERATION
     Dosage: OVER 3 YEARS AGO
     Route: 048
     Dates: start: 2016
  3. HUMIRA [Suspect]
     Active Substance: ADALIMUMAB
     Dosage: 40 MG / 0.4 ML
     Route: 058
  4. CYCLOSPORINE. [Concomitant]
     Active Substance: CYCLOSPORINE
     Indication: PRODUCT USED FOR UNKNOWN INDICATION
     Dosage: OVER 3 YEARS AGO
     Route: 047
     Dates: start: 2016
  5. HUMIRA [Suspect]
     Active Substance: ADALIMUMAB
     Indication: RHEUMATOID ARTHRITIS
     Dosage: 40 MG / 0.8 ML
     Route: 058
     Dates: start: 200801
  6. METHOTREXATE. [Concomitant]
     Active Substance: METHOTREXATE
     Indication: RHEUMATOID ARTHRITIS
     Route: 048
     Dates: start: 2017
  7. FLAX OIL [Concomitant]
     Indication: VISUAL IMPAIRMENT
     Route: 048
     Dates: start: 2016
  8. FOLIC ACID. [Concomitant]
     Active Substance: FOLIC ACID
     Indication: PRODUCT USED FOR UNKNOWN INDICATION
     Route: 048
     Dates: start: 2017

REACTIONS (4)
  - Macular degeneration [Not Recovered/Not Resolved]
  - Therapeutic response unexpected [Unknown]
  - Blindness [Not Recovered/Not Resolved]
  - Cataract [Not Recovered/Not Resolved]

NARRATIVE: CASE EVENT DATE: 2014
